FAERS Safety Report 8258384-2 (Version None)
Quarter: 2012Q2

REPORT INFORMATION
  Report Type: 
  Country: None (occurrence: None)
  Receive Date: 20120404
  Receipt Date: 20120322
  Transmission Date: 20120825
  Serious: Yes (Hospitalization, Other)
  Sender: FDA-Public Use
  Company Number: CZ-COVIDIEN/TYCO HEALTHCARE/MALLINCKRODT-T201201159

PATIENT
  Age: 7 Year
  Sex: Female

DRUGS (6)
  1. METHYLIN ER [Suspect]
     Dosage: 36 MG PER DAY
  2. METHYLIN ER [Suspect]
     Dosage: 18 MG PER DAY
  3. METHYLPHENIDATE [Concomitant]
     Dosage: 10 MG IN THE MORNING FOR THE FIRST MONTH
  4. METHYLPHENIDATE [Concomitant]
     Dosage: 10 MG TWICE A DAY
  5. METHYLPHENIDATE [Concomitant]
     Dosage: UP TO 10 MG IN THE MORNING AND 5 MG 3 HRS LATER
  6. METHYLPHENIDATE [Concomitant]
     Dosage: 5 MG MORNING AND EARLY AFTERNOON

REACTIONS (2)
  - INSOMNIA [None]
  - STATUS EPILEPTICUS [None]
